FAERS Safety Report 9653705 (Version 1)
Quarter: 2013Q4

REPORT INFORMATION
  Report Type: Spontaneous
  Country: US (occurrence: US)
  Receive Date: 20131029
  Receipt Date: 20131029
  Transmission Date: 20140711
  Serious: No
  Sender: FDA-Public Use
  Company Number: US-BIOGENIDEC-2013BI080417

PATIENT
  Sex: Male

DRUGS (1)
  1. TECFIDERA [Suspect]
     Indication: MULTIPLE SCLEROSIS

REACTIONS (8)
  - Dysphagia [Not Recovered/Not Resolved]
  - Salivary hypersecretion [Not Recovered/Not Resolved]
  - Urinary tract infection [Unknown]
  - Peroneal nerve palsy [Unknown]
  - Fall [Recovered/Resolved]
  - Micturition urgency [Unknown]
  - Hemiparesis [Unknown]
  - Multiple sclerosis relapse [Unknown]
